FAERS Safety Report 16631651 (Version 1)
Quarter: 2019Q3

REPORT INFORMATION
  Report Type: Spontaneous
  Country: US (occurrence: US)
  Receive Date: 20190725
  Receipt Date: 20190725
  Transmission Date: 20191004
  Serious: No
  Sender: FDA-Public Use
  Company Number: US-ABBVIE-18P-163-2447849-00

PATIENT
  Sex: Female

DRUGS (2)
  1. SYNTHROID [Suspect]
     Active Substance: LEVOTHYROXINE SODIUM
     Indication: HYPOTHYROIDISM
     Route: 048
     Dates: start: 2018
  2. SYNTHROID [Suspect]
     Active Substance: LEVOTHYROXINE SODIUM
     Indication: HYPOTHYROIDISM
     Dosage: TAKES 100 MCG DAILY FOR 2 DAYS AND 75 MCG DAILY FOR THE REST OF THE WEEK
     Route: 048
     Dates: start: 2002, end: 2018

REACTIONS (4)
  - Therapeutic product effect increased [Not Recovered/Not Resolved]
  - Palpitations [Recovered/Resolved]
  - Thyroid function test abnormal [Not Recovered/Not Resolved]
  - Therapeutic product effect decreased [Not Recovered/Not Resolved]
